FAERS Safety Report 24331663 (Version 1)
Quarter: 2024Q3

REPORT INFORMATION
  Report Type: Spontaneous
  Country: GB (occurrence: GB)
  Receive Date: 20240918
  Receipt Date: 20240918
  Transmission Date: 20241016
  Serious: Yes (Other)
  Sender: RANBAXY
  Company Number: GB-MHRA-MED-202409022234579740-WNRKQ

PATIENT
  Age: 48 Year
  Sex: Male
  Weight: 85 kg

DRUGS (1)
  1. TAMSULOSIN [Suspect]
     Active Substance: TAMSULOSIN
     Indication: Nephrolithiasis
     Dosage: UNK
     Route: 065
     Dates: start: 20240820

REACTIONS (2)
  - Brain fog [Not Recovered/Not Resolved]
  - Retrograde ejaculation [Not Recovered/Not Resolved]

NARRATIVE: CASE EVENT DATE: 20240820
